FAERS Safety Report 25055285 (Version 2)
Quarter: 2025Q3

REPORT INFORMATION
  Report Type: Spontaneous
  Country: US (occurrence: US)
  Receive Date: 20250308
  Receipt Date: 20250915
  Transmission Date: 20251021
  Serious: No
  Sender: SANOFI AVENTIS
  Company Number: US-SA-2025SA068646

PATIENT
  Age: 77 Year
  Sex: Male

DRUGS (1)
  1. DUPIXENT [Suspect]
     Active Substance: DUPILUMAB
     Indication: Asthma
     Dosage: 300 MG, QOW
     Route: 058

REACTIONS (6)
  - Muscular weakness [Unknown]
  - Dizziness [Unknown]
  - Vision blurred [Recovering/Resolving]
  - Dry eye [Recovering/Resolving]
  - Eye pruritus [Recovering/Resolving]
  - Surgery [Unknown]

NARRATIVE: CASE EVENT DATE: 20240101
